FAERS Safety Report 4557773-7 (Version None)
Quarter: 2005Q1

REPORT INFORMATION
  Report Type: 
  Country: None (occurrence: None)
  Receive Date: 20050103
  Receipt Date: 20040723
  Transmission Date: 20050727
  Serious: Yes (Other)
  Sender: FDA-Public Use
  Company Number: 2004UW15627

PATIENT
  Age: 86 Year
  Sex: Male
  Weight: 77.1115 kg

DRUGS (8)
  1. CRESTOR [Suspect]
     Indication: BLOOD CHOLESTEROL INCREASED
     Dosage: 10 MG QD PO
     Route: 048
  2. NEURONTIN [Concomitant]
  3. TRAMADOL HCL [Concomitant]
  4. TYLENOL [Concomitant]
  5. ROLAIDS [Concomitant]
  6. CARDURA [Concomitant]
  7. ULTRAM [Concomitant]
  8. MULTIVITAMIN [Concomitant]

REACTIONS (3)
  - CONSTIPATION [None]
  - STOMACH DISCOMFORT [None]
  - VISION BLURRED [None]
